FAERS Safety Report 5350630-8 (Version None)
Quarter: 2007Q2

REPORT INFORMATION
  Report Type: 
  Country: None (occurrence: None)
  Receive Date: 20070608
  Receipt Date: 20070529
  Transmission Date: 20071010
  Serious: Yes (Disabling, Other)
  Sender: FDA-Public Use
  Company Number: US-ROCHE-481814

PATIENT
  Age: 24 Year
  Sex: Female

DRUGS (2)
  1. ACCUTANE [Suspect]
     Indication: DERMATITIS
     Route: 065
     Dates: start: 19940101, end: 19950101
  2. ACCUTANE [Suspect]
     Route: 065
     Dates: start: 20051001

REACTIONS (11)
  - ANAEMIA [None]
  - ANAL ULCER [None]
  - COLITIS [None]
  - COLITIS ULCERATIVE [None]
  - ENTEROCOLITIS INFECTIOUS [None]
  - GASTROINTESTINAL DISORDER [None]
  - HAEMORRHAGE [None]
  - INFLAMMATORY BOWEL DISEASE [None]
  - INTESTINAL HAEMORRHAGE [None]
  - IRRITABLE BOWEL SYNDROME [None]
  - RECTAL HAEMORRHAGE [None]
